FAERS Safety Report 8027855-6 (Version None)
Quarter: 2012Q1

REPORT INFORMATION
  Report Type: 
  Country: None (occurrence: None)
  Receive Date: 20120106
  Receipt Date: 20120103
  Transmission Date: 20120608
  Serious: Yes (Other)
  Sender: FDA-Public Use
  Company Number: BR-SHIRE-SPV1-2011-00791

PATIENT
  Sex: Male
  Weight: 56 kg

DRUGS (5)
  1. HYDROCHLOROTHIAZIDE [Concomitant]
     Indication: DIURETIC THERAPY
     Dosage: 25 MG, 1X/DAY:QD
     Route: 048
     Dates: start: 20051209, end: 20080101
  2. CAPTOPRIL [Concomitant]
     Indication: CARDIOVASCULAR DISORDER
     Dosage: 25 MG, 2X/DAY:BID
     Route: 048
     Dates: start: 20051129, end: 20080101
  3. IDURSULFASE [Suspect]
     Indication: MUCOPOLYSACCHARIDOSIS II
     Dosage: 24.5 MG, 1X/WEEK
     Route: 041
     Dates: start: 20040123
  4. LOSARTAN POTASSIUM AND HYDROCHLOROTHIAZIDE [Concomitant]
     Indication: HYPERTENSION
     Dosage: UNK UNK, 1X/DAY:QD (50MG/12.5MG)
     Route: 065
     Dates: start: 20080101
  5. HYDROCHLOROTHIAZIDE [Concomitant]
     Indication: CARDIOVASCULAR DISORDER

REACTIONS (2)
  - ALCOHOLISM [None]
  - DRUG DEPENDENCE [None]
